FAERS Safety Report 18658881 (Version 1)
Quarter: 2020Q4

REPORT INFORMATION
  Report Type: Spontaneous
  Country: US (occurrence: US)
  Receive Date: 20201224
  Receipt Date: 20201224
  Transmission Date: 20210114
  Serious: No
  Sender: FDA-Public Use
  Company Number: US-GE HEALTHCARE LIFE SCIENCES-2020CSU005854

PATIENT
  Age: 70 Year
  Sex: Female
  Weight: 74.83 kg

DRUGS (20)
  1. ASPIRIN 81 [Concomitant]
     Active Substance: ASPIRIN
     Dosage: 81 MG, QD
     Route: 065
  2. LUTEIN [TAGETES SPP.] [Concomitant]
     Dosage: UNK
     Route: 048
  3. FLONASE [Concomitant]
     Active Substance: FLUTICASONE PROPIONATE
     Dosage: UNK
     Route: 045
  4. OMNIPAQUE [Suspect]
     Active Substance: IOHEXOL
     Indication: COMPUTERISED TOMOGRAM PELVIS
  5. OMNIPAQUE [Suspect]
     Active Substance: IOHEXOL
     Indication: IRRITABLE BOWEL SYNDROME
  6. LIPITOR [Concomitant]
     Active Substance: ATORVASTATIN CALCIUM
     Dosage: 10 MG, 20MG, 33 X WEEK
     Route: 065
  7. ATACAND [Concomitant]
     Active Substance: CANDESARTAN CILEXETIL
     Dosage: 32 MG, QD
     Route: 065
  8. PEPCID [ALUMINIUM HYDROXIDE GEL, DRIED;MAGNESIUM CARBONATE] [Concomitant]
     Active Substance: ALUMINUM HYDROXIDE\MAGNESIUM CARBONATE
     Dosage: 20 MG, QD
     Route: 065
  9. LIPITOR [Concomitant]
     Active Substance: ATORVASTATIN CALCIUM
     Dosage: 20 MG, 3 PER WEEK
  10. VITAMIN D3 [Concomitant]
     Active Substance: CHOLECALCIFEROL
     Dosage: 5000 IU
     Route: 065
  11. OMNIPAQUE [Suspect]
     Active Substance: IOHEXOL
     Indication: ABDOMINAL DISTENSION
  12. TUMS [Concomitant]
     Active Substance: CALCIUM CARBONATE
     Dosage: 500 MG, QD
  13. FISH OIL [Concomitant]
     Active Substance: FISH OIL
     Dosage: 340-1000 MG, QD
     Route: 065
  14. LACTOBAC [BIFIDOBACTERIUM BIFIDUM;LACTOBACILLUS RHAMNOSUS] [Concomitant]
     Dosage: UNK
     Route: 048
  15. OMNIPAQUE [Suspect]
     Active Substance: IOHEXOL
     Indication: PAIN
  16. OMNIPAQUE [Suspect]
     Active Substance: IOHEXOL
     Indication: GASTROOESOPHAGEAL REFLUX DISEASE
  17. TYLENOL [Concomitant]
     Active Substance: ACETAMINOPHEN
     Dosage: 325 DF, PRN
     Route: 065
  18. NEXIUM [Concomitant]
     Active Substance: ESOMEPRAZOLE MAGNESIUM
     Dosage: 40 MG, QD
     Route: 048
  19. MULTIVITAMIN IRON [Concomitant]
     Dosage: UNK
     Route: 065
  20. OMNIPAQUE [Suspect]
     Active Substance: IOHEXOL
     Indication: COMPUTERISED TOMOGRAM ABDOMEN
     Dosage: 135 ML, SINGLE
     Route: 042
     Dates: start: 20201112, end: 20201112

REACTIONS (1)
  - Abdominal discomfort [Recovered/Resolved]

NARRATIVE: CASE EVENT DATE: 20201112
